FAERS Safety Report 4991364-9 (Version None)
Quarter: 2006Q2

REPORT INFORMATION
  Report Type: 
  Country: None (occurrence: None)
  Receive Date: 20060428
  Receipt Date: 20060413
  Transmission Date: 20061013
  Serious: Yes (Hospitalization)
  Sender: FDA-Public Use
  Company Number: US200604002275

PATIENT
  Age: 44 Year
  Sex: Female

DRUGS (3)
  1. FORTEO [Suspect]
     Indication: OSTEOPOROSIS
     Dates: start: 20040101
  2. FORTEO [Concomitant]
  3. PREDNISONE TAB [Concomitant]

REACTIONS (5)
  - HEART RATE INCREASED [None]
  - INTERNATIONAL NORMALISED RATIO DECREASED [None]
  - PHARMACEUTICAL PRODUCT COMPLAINT [None]
  - RED BLOOD CELL COUNT DECREASED [None]
  - WHITE BLOOD CELL COUNT DECREASED [None]
